FAERS Safety Report 14664630 (Version 2)
Quarter: 2018Q2

REPORT INFORMATION
  Report Type: Spontaneous
  Country: FR (occurrence: FR)
  Receive Date: 20180321
  Receipt Date: 20180417
  Transmission Date: 20180711
  Serious: No
  Sender: FDA-Public Use
  Company Number: FR-PFIZER INC-2018109159

PATIENT
  Age: 65 Year
  Sex: Male

DRUGS (7)
  1. IBRUTINIB [Interacting]
     Active Substance: IBRUTINIB
     Dosage: 140 MG, 1X/DAY
     Route: 048
  2. PREDNISONE. [Concomitant]
     Active Substance: PREDNISONE
     Dosage: 20 MG, DAILY
  3. IBRUTINIB [Interacting]
     Active Substance: IBRUTINIB
     Indication: CHRONIC LYMPHOCYTIC LEUKAEMIA
     Dosage: 420 MG, 1X/DAY
     Route: 048
  4. RITUXIMAB. [Concomitant]
     Active Substance: RITUXIMAB
     Indication: CHRONIC LYMPHOCYTIC LEUKAEMIA
     Dosage: 500 MG/M2, EVERY TWO WEEKS
  5. PREDNISONE. [Concomitant]
     Active Substance: PREDNISONE
     Indication: CHRONIC LYMPHOCYTIC LEUKAEMIA
     Dosage: 1.5 MG/KG, DAILY
  6. VORICONAZOLE. [Suspect]
     Active Substance: VORICONAZOLE
     Indication: CEREBRAL ASPERGILLOSIS
     Dosage: UNK
     Route: 048
  7. IBRUTINIB [Interacting]
     Active Substance: IBRUTINIB
     Dosage: 420 MG, 1X/DAY
     Route: 048

REACTIONS (1)
  - Drug interaction [Recovered/Resolved]
